FAERS Safety Report 19504662 (Version 1)
Quarter: 2021Q3

REPORT INFORMATION
  Report Type: Report from Study
  Country: GB (occurrence: GB)
  Receive Date: 20210708
  Receipt Date: 20210708
  Transmission Date: 20211014
  Serious: Yes (Death)
  Sender: FDA-Public Use
  Company Number: GB-CELLTRION INC.-2021GB009091

PATIENT

DRUGS (18)
  1. PERTUZUMAB. [Suspect]
     Active Substance: PERTUZUMAB
     Dosage: 420 MG, EVERY 3 WEEKS
     Route: 042
     Dates: start: 20160608
  2. TRIMETHOPRIM. [Concomitant]
     Active Substance: TRIMETHOPRIM
     Dosage: 200 MG, EVERY 0.5 DAY
     Route: 048
     Dates: start: 20160919, end: 20160922
  3. TRASTUZUMAB (UNKNOWN) [Suspect]
     Active Substance: TRASTUZUMAB
     Indication: BREAST CANCER
     Dosage: 600 MG, EVERY 3 WEEKS
     Route: 042
     Dates: start: 20160518
  4. DOCETAXEL. [Suspect]
     Active Substance: DOCETAXEL
     Dosage: 140 MG, EVERY 3 WEEKS
     Route: 042
     Dates: start: 20160519, end: 20160519
  5. PERTUZUMAB. [Suspect]
     Active Substance: PERTUZUMAB
     Indication: BREAST CANCER
     Dosage: 840 MG, EVERY 3 WEEKS
     Route: 042
     Dates: start: 20160518, end: 20160518
  6. OMEPRAZOLE. [Concomitant]
     Active Substance: OMEPRAZOLE
     Dosage: 20 MG, EVERY 1 DAY
     Route: 048
     Dates: start: 20160627
  7. BENZYDAMINE HYDROCHLORIDE [Concomitant]
     Active Substance: BENZYDAMINE HYDROCHLORIDE
     Dosage: 10 ML, EVERY 0.25 DAY
     Route: 061
     Dates: start: 20160518
  8. PARACETAMOL [Concomitant]
     Active Substance: ACETAMINOPHEN
     Dosage: 1 G, AS NEEDED
     Route: 048
     Dates: start: 20160518
  9. ONDANSETRON [Concomitant]
     Active Substance: ONDANSETRON
     Dosage: 8 MG, EVERY 0.5 DAY
     Route: 048
     Dates: start: 20160518
  10. RANITIDINE. [Concomitant]
     Active Substance: RANITIDINE
     Dosage: 150 MG, EVERY 0.5 DAY
     Route: 048
     Dates: start: 20160518
  11. CYSTOPURIN [Concomitant]
     Dosage: 3 MG, EVERY 0.33 DAY
     Route: 048
     Dates: start: 20160918, end: 20160919
  12. IMODIUM [Concomitant]
     Active Substance: LOPERAMIDE HYDROCHLORIDE
     Dosage: 2 MG, AS NEEDED
     Route: 048
     Dates: start: 20160518
  13. CHLORAMPHENICOL [Concomitant]
     Active Substance: CHLORAMPHENICOL
     Dosage: 1 [DRP], OTHER
     Route: 047
     Dates: start: 201610
  14. RENNIE [Concomitant]
     Dosage: 680 MG, PRN
     Route: 048
     Dates: start: 20160516
  15. DOCETAXEL. [Suspect]
     Active Substance: DOCETAXEL
     Indication: BREAST CANCER
     Dosage: 110 MG, EVERY 3 WEEKS
     Route: 042
     Dates: start: 20160609, end: 20160919
  16. DOMPERIDONE [Concomitant]
     Active Substance: DOMPERIDONE
     Dosage: 10 MG, EVERY 0.33  DAY
     Route: 048
     Dates: start: 20160518
  17. TETRACYCLINE [Concomitant]
     Active Substance: TETRACYCLINE
     Dosage: 250 MG, EVERY 0.33 DAY
     Route: 033
     Dates: start: 20170327
  18. AMOXICILLIN. [Concomitant]
     Active Substance: AMOXICILLIN
     Dosage: 250 MG, EVERY 0.33 DAY
     Route: 048
     Dates: start: 201701, end: 201701

REACTIONS (2)
  - Insomnia [Recovered/Resolved]
  - Disease progression [Fatal]

NARRATIVE: CASE EVENT DATE: 201608
